FAERS Safety Report 6712324-3 (Version None)
Quarter: 2010Q2

REPORT INFORMATION
  Report Type: 
  Country: None (occurrence: None)
  Receive Date: 20100505
  Receipt Date: 20100429
  Transmission Date: 20101027
  Serious: Yes (Death)
  Sender: FDA-Public Use
  Company Number: US-GILEAD-2010-0028846

PATIENT
  Sex: Female
  Weight: 61.29 kg

DRUGS (22)
  1. LETAIRIS [Suspect]
     Indication: PULMONARY ARTERIAL HYPERTENSION
     Route: 048
     Dates: start: 20090609
  2. OXYGEN [Concomitant]
  3. ASPIRIN [Concomitant]
  4. PLAVIX [Concomitant]
  5. SPIRONOLACTONE [Concomitant]
  6. MAXZIDE [Concomitant]
  7. TEKTURNA [Concomitant]
  8. ALTACE [Concomitant]
  9. COREG [Concomitant]
  10. PRAVACHOL [Concomitant]
  11. NITROGLYCERIN [Concomitant]
  12. SYMBICORT [Concomitant]
  13. PREDNISONE [Concomitant]
  14. COMBIVENT [Concomitant]
  15. SINGULAIR [Concomitant]
  16. SPIRIVA [Concomitant]
  17. GLUCOPHAGE [Concomitant]
  18. JANUVIA [Concomitant]
  19. AMITRIPTYLINE HYDROCHLORIDE [Concomitant]
  20. XANAX [Concomitant]
  21. VESICARE [Concomitant]
  22. SLO-RELEASE IRON [Concomitant]

REACTIONS (1)
  - DEATH [None]
